FAERS Safety Report 16049170 (Version 2)
Quarter: 2019Q1

REPORT INFORMATION
  Report Type: Spontaneous
  Country: US (occurrence: US)
  Receive Date: 20190307
  Receipt Date: 20190313
  Transmission Date: 20190418
  Serious: Yes (Other)
  Sender: FDA-Public Use
  Company Number: US-ASTRAZENECA-2018SF33858

PATIENT
  Age: 22066 Day
  Sex: Female

DRUGS (40)
  1. NEXIUM [Suspect]
     Active Substance: ESOMEPRAZOLE MAGNESIUM
     Route: 048
     Dates: start: 20110217
  2. PREVACID [Suspect]
     Active Substance: LANSOPRAZOLE
     Route: 065
     Dates: start: 20090427
  3. MINOXIDIL. [Concomitant]
     Active Substance: MINOXIDIL
  4. CRESTOR [Concomitant]
     Active Substance: ROSUVASTATIN CALCIUM
  5. EXFORGE [Concomitant]
     Active Substance: AMLODIPINE BESYLATE\VALSARTAN
  6. CARVEDILOL. [Concomitant]
     Active Substance: CARVEDILOL
  7. LISINOPRIL. [Concomitant]
     Active Substance: LISINOPRIL
  8. NEXIUM [Suspect]
     Active Substance: ESOMEPRAZOLE MAGNESIUM
     Route: 048
     Dates: start: 200611, end: 201206
  9. PRILOSEC OTC [Suspect]
     Active Substance: OMEPRAZOLE MAGNESIUM
     Route: 048
     Dates: start: 20060701, end: 20170622
  10. PREVACID [Suspect]
     Active Substance: LANSOPRAZOLE
     Route: 065
     Dates: start: 20090503, end: 20100106
  11. CLONIDINE. [Concomitant]
     Active Substance: CLONIDINE
  12. LEVEMIR [Concomitant]
     Active Substance: INSULIN DETEMIR
  13. METOCLOPRAMIDE. [Concomitant]
     Active Substance: METOCLOPRAMIDE
  14. PROTONIX [Suspect]
     Active Substance: PANTOPRAZOLE SODIUM
     Route: 065
     Dates: start: 200611, end: 201206
  15. INSULIN [Concomitant]
     Active Substance: INSULIN NOS
  16. HYDROCODONE W/ACETAMINOPHEN [Concomitant]
     Active Substance: ACETAMINOPHEN\HYDROCODONE BITARTRATE
  17. PREDNISONE. [Concomitant]
     Active Substance: PREDNISONE
  18. STARLIX [Concomitant]
     Active Substance: NATEGLINIDE
  19. NEXIUM [Suspect]
     Active Substance: ESOMEPRAZOLE MAGNESIUM
     Route: 048
     Dates: start: 20061113, end: 20120623
  20. PRILOSEC [Suspect]
     Active Substance: OMEPRAZOLE MAGNESIUM
     Route: 048
     Dates: start: 20040101, end: 20070101
  21. PRILOSEC OTC [Suspect]
     Active Substance: OMEPRAZOLE MAGNESIUM
     Route: 048
     Dates: start: 200611, end: 201206
  22. PREVACID [Suspect]
     Active Substance: LANSOPRAZOLE
     Route: 065
     Dates: start: 200611, end: 201206
  23. PROTONIX [Suspect]
     Active Substance: PANTOPRAZOLE SODIUM
     Route: 048
     Dates: start: 20171217
  24. METFORMIN [Concomitant]
     Active Substance: METFORMIN HYDROCHLORIDE
  25. PRILOSEC [Suspect]
     Active Substance: OMEPRAZOLE MAGNESIUM
     Route: 048
     Dates: start: 20091031
  26. NOVOLOG [Concomitant]
     Active Substance: INSULIN ASPART
  27. CIPROFLOXACIN. [Concomitant]
     Active Substance: CIPROFLOXACIN
  28. AZITHROMYCIN ANHYDROUS. [Concomitant]
     Active Substance: AZITHROMYCIN ANHYDROUS
  29. IBUPROFEN. [Concomitant]
     Active Substance: IBUPROFEN
  30. PRILOSEC [Suspect]
     Active Substance: OMEPRAZOLE MAGNESIUM
     Route: 048
     Dates: start: 200611, end: 201206
  31. COREG [Concomitant]
     Active Substance: CARVEDILOL
  32. AMLODIPINE [Concomitant]
     Active Substance: AMLODIPINE BESYLATE
  33. AMOXICILLIN. [Concomitant]
     Active Substance: AMOXICILLIN
  34. NEXIUM 24HR [Suspect]
     Active Substance: ESOMEPRAZOLE MAGNESIUM
     Route: 048
     Dates: start: 200611, end: 201206
  35. ASA [Concomitant]
     Active Substance: ASPIRIN
  36. NIASPAN [Concomitant]
     Active Substance: NIACIN
  37. LASIX [Concomitant]
     Active Substance: FUROSEMIDE
  38. HYDROCODONE [Concomitant]
     Active Substance: HYDROCODONE
  39. VERAPAMIL [Concomitant]
     Active Substance: VERAPAMIL HYDROCHLORIDE
  40. TOPROL XL [Concomitant]
     Active Substance: METOPROLOL SUCCINATE

REACTIONS (4)
  - Renal failure [Unknown]
  - Chronic kidney disease [Unknown]
  - End stage renal disease [Unknown]
  - Renal injury [Unknown]

NARRATIVE: CASE EVENT DATE: 20151106
